FAERS Safety Report 15561278 (Version 3)
Quarter: 2018Q4

REPORT INFORMATION
  Report Type: Spontaneous
  Country: JP (occurrence: JP)
  Receive Date: 20181029
  Receipt Date: 20181123
  Transmission Date: 20190205
  Serious: Yes (Other)
  Sender: FDA-Public Use
  Company Number: JP-GLAXOSMITHKLINE-JP2018194580

PATIENT
  Sex: Male

DRUGS (2)
  1. VOLTAREN [Suspect]
     Active Substance: DICLOFENAC SODIUM
     Indication: PAIN MANAGEMENT
     Dosage: UNK
     Route: 048
  2. COLCHICINE + PROBENECID [Concomitant]
     Indication: GOUT
     Dosage: UNK UNK, QD
     Route: 065

REACTIONS (4)
  - Bradyphrenia [Unknown]
  - Judgement impaired [Unknown]
  - Headache [Unknown]
  - Renal impairment [Unknown]
